FAERS Safety Report 17560291 (Version 6)
Quarter: 2020Q2

REPORT INFORMATION
  Report Type: Report from Study
  Country: US (occurrence: US)
  Receive Date: 20200319
  Receipt Date: 20200506
  Transmission Date: 20200713
  Serious: Yes (Hospitalization, Other)
  Sender: FDA-Public Use
  Company Number: US-GILEAD-2020-0455075

PATIENT
  Age: 51 Year
  Sex: Female

DRUGS (7)
  1. AMBRISENTAN [Suspect]
     Active Substance: AMBRISENTAN
     Dosage: 10 MG, QD
     Route: 048
     Dates: start: 20130917
  2. ELIQUIS [Concomitant]
     Active Substance: APIXABAN
  3. TYVASO [Suspect]
     Active Substance: TREPROSTINIL
     Indication: PRODUCT USED FOR UNKNOWN INDICATION
     Dosage: UNK
     Route: 065
     Dates: start: 20200316
  4. SILDENAFIL. [Concomitant]
     Active Substance: SILDENAFIL
  5. TYVASO [Suspect]
     Active Substance: TREPROSTINIL
     Dosage: 12 BREATHS, QID
     Route: 065
     Dates: start: 20200325
  6. ADEMPAS [Suspect]
     Active Substance: RIOCIGUAT
     Indication: PRODUCT USED FOR UNKNOWN INDICATION
     Dosage: UNK
     Route: 065
     Dates: start: 2020, end: 2020
  7. AMBRISENTAN [Suspect]
     Active Substance: AMBRISENTAN
     Indication: PRODUCT USED FOR UNKNOWN INDICATION
     Dosage: 10 MG, QD
     Route: 048
     Dates: start: 20191120

REACTIONS (20)
  - Painful respiration [Unknown]
  - Dyspnoea [Unknown]
  - Oropharyngeal pain [Recovered/Resolved]
  - Headache [Not Recovered/Not Resolved]
  - Haemorrhage [Unknown]
  - Blood pressure fluctuation [Unknown]
  - Cough [Recovered/Resolved]
  - Cough [Unknown]
  - Throat irritation [Recovered/Resolved]
  - Loss of consciousness [Unknown]
  - Fall [Unknown]
  - Malaise [Not Recovered/Not Resolved]
  - Nausea [Unknown]
  - Cold sweat [Unknown]
  - Impaired gastric emptying [Not Recovered/Not Resolved]
  - Dizziness [Unknown]
  - Chest discomfort [Recovered/Resolved]
  - Headache [Recovered/Resolved]
  - Fluid intake restriction [Not Recovered/Not Resolved]
  - Migraine [Not Recovered/Not Resolved]

NARRATIVE: CASE EVENT DATE: 20200313
